FAERS Safety Report 6192782-6 (Version None)
Quarter: 2009Q2

REPORT INFORMATION
  Report Type: 
  Country: None (occurrence: None)
  Receive Date: 20090518
  Receipt Date: 20090506
  Transmission Date: 20091009
  Serious: Yes (Hospitalization)
  Sender: FDA-Public Use
  Company Number: DE-AMGEN-UK344644

PATIENT
  Sex: Female

DRUGS (5)
  1. ARANESP [Suspect]
     Indication: DRUG USE FOR UNKNOWN INDICATION
     Route: 058
     Dates: start: 20060422, end: 20060512
  2. NEULASTA [Suspect]
     Indication: DRUG USE FOR UNKNOWN INDICATION
     Route: 058
     Dates: start: 20060422, end: 20060512
  3. DOCETAXEL [Suspect]
     Route: 042
     Dates: start: 20060421, end: 20060512
  4. DOXORUBICIN HYDROCHLORIDE [Suspect]
     Route: 042
     Dates: start: 20060421, end: 20060512
  5. CYCLOPHOSPHAMIDE [Suspect]
     Route: 042
     Dates: start: 20060421, end: 20060512

REACTIONS (9)
  - ARTHRALGIA [None]
  - CONTUSION [None]
  - FALL [None]
  - INFLAMMATION [None]
  - NAUSEA [None]
  - SUBCLAVIAN VEIN THROMBOSIS [None]
  - SYNCOPE [None]
  - THROMBOSIS [None]
  - VOMITING [None]
